FAERS Safety Report 4330940-3 (Version None)
Quarter: 2004Q1

REPORT INFORMATION
  Report Type: 
  Country: None (occurrence: None)
  Receive Date: 20040330
  Receipt Date: 20040317
  Transmission Date: 20041129
  Serious: Yes (Other)
  Sender: FDA-Public Use
  Company Number: PT-SHR-04-022772

PATIENT
  Age: 82 Year
  Sex: Male
  Weight: 70 kg

DRUGS (4)
  1. FLUDARA [Suspect]
     Indication: NON-HODGKIN'S LYMPHOMA
     Dosage: 50 MG, CYCLE X 5D, ORAL
     Route: 048
     Dates: start: 20030801, end: 20031104
  2. CYCLOPHOSPHAMIDE [Concomitant]
  3. ACYCLOVIR [Concomitant]
  4. CO-TRIMOXAZOLE [Concomitant]

REACTIONS (3)
  - PRURIGO [None]
  - RASH MACULO-PAPULAR [None]
  - TOXIC SKIN ERUPTION [None]
